FAERS Safety Report 16767052 (Version 2)
Quarter: 2019Q3

REPORT INFORMATION
  Report Type: Spontaneous
  Country: PT (occurrence: PT)
  Receive Date: 20190903
  Receipt Date: 20190919
  Transmission Date: 20191005
  Serious: Yes (Hospitalization, Other)
  Sender: FDA-Public Use
  Company Number: PT-MYLANLABS-2019M1081676

PATIENT
  Age: 62 Year
  Sex: Female

DRUGS (10)
  1. DARBEPOETIN ALFA [Suspect]
     Active Substance: DARBEPOETIN ALFA
     Indication: MICROSCOPIC POLYANGIITIS
     Dosage: UNK
     Route: 065
  2. CYCLOPHOSPHAMIDE. [Suspect]
     Active Substance: CYCLOPHOSPHAMIDE
     Indication: MICROSCOPIC POLYANGIITIS
     Dosage: 1.5 MG/KG, QD
     Route: 065
  3. DARBEPOETIN ALFA [Suspect]
     Active Substance: DARBEPOETIN ALFA
     Indication: UVEITIS
     Dosage: 40 MICROGRAM, QW
     Route: 065
  4. PREDNISOLONE. [Suspect]
     Active Substance: PREDNISOLONE
     Dosage: 5 MG, QD
     Route: 065
  5. PREDNISOLONE. [Suspect]
     Active Substance: PREDNISOLONE
     Indication: UVEITIS
     Dosage: 10 MG, QD
     Route: 065
  6. ALLOPURINOL. [Suspect]
     Active Substance: ALLOPURINOL
     Indication: MICROSCOPIC POLYANGIITIS
     Dosage: UNK
     Route: 065
  7. ALLOPURINOL. [Interacting]
     Active Substance: ALLOPURINOL
     Indication: UVEITIS
  8. AZATHIOPRINE. [Interacting]
     Active Substance: AZATHIOPRINE
     Indication: MICROSCOPIC POLYANGIITIS
     Dosage: 1 MG/KG, QD
     Route: 065
  9. AZATHIOPRINE. [Interacting]
     Active Substance: AZATHIOPRINE
     Indication: UVEITIS
  10. PREDNISOLONE. [Suspect]
     Active Substance: PREDNISOLONE
     Indication: MICROSCOPIC POLYANGIITIS
     Dosage: 1.5 MILLIGRAM/KILOGRAM, QD
     Route: 065

REACTIONS (4)
  - Anaemia [Unknown]
  - Renal impairment [Not Recovered/Not Resolved]
  - Labelled drug-drug interaction medication error [Recovered/Resolved]
  - Product use in unapproved indication [Unknown]
